FAERS Safety Report 19498038 (Version 1)
Quarter: 2021Q3

REPORT INFORMATION
  Report Type: Spontaneous
  Country: IR (occurrence: IR)
  Receive Date: 20210706
  Receipt Date: 20210706
  Transmission Date: 20211014
  Serious: Yes (Death)
  Sender: FDA-Public Use
  Company Number: IR-ELITE LABORATORIES INC.-2021ELT00110

PATIENT
  Age: 24 Year
  Sex: Female

DRUGS (1)
  1. ACETAMINOPHEN AND CODEINE [Suspect]
     Active Substance: ACETAMINOPHEN\CODEINE PHOSPHATE
     Indication: EMOTIONAL DISORDER
     Dosage: ^50 TO 60 TABLETS OF ACETAMINOPHEN/CODEINE 300/20 MG AND 500 MG DAILY^
     Route: 065

REACTIONS (4)
  - Toxicity to various agents [Fatal]
  - Hepatorenal syndrome [Fatal]
  - Metabolic acidosis [Fatal]
  - Electrolyte imbalance [Fatal]

NARRATIVE: CASE EVENT DATE: 20201220
